FAERS Safety Report 5110346-X (Version None)
Quarter: 2006Q3

REPORT INFORMATION
  Report Type: 
  Country: None (occurrence: None)
  Receive Date: 20060921
  Receipt Date: 20060913
  Transmission Date: 20061208
  Serious: Yes (Disabling, Other)
  Sender: FDA-Public Use
  Company Number: PHBS2006TH14175

PATIENT
  Age: 26 Year
  Sex: Female
  Weight: 49 kg

DRUGS (2)
  1. MYFORTIC [Suspect]
     Indication: SYSTEMIC LUPUS ERYTHEMATOSUS
     Dosage: 360 MG/D
     Route: 048
     Dates: start: 20060314, end: 20060415
  2. PREDNISOLONE [Concomitant]

REACTIONS (1)
  - ALOPECIA AREATA [None]
